FAERS Safety Report 8490445-5 (Version None)
Quarter: 2012Q3

REPORT INFORMATION
  Report Type: 
  Country: None (occurrence: None)
  Receive Date: 20120705
  Receipt Date: 20120625
  Transmission Date: 20120928
  Serious: Yes (Hospitalization)
  Sender: FDA-Public Use
  Company Number: GB-CELGENEUS-167-21880-12061778

PATIENT
  Sex: Male

DRUGS (2)
  1. REVLIMID [Suspect]
     Dosage: 10 MILLIGRAM
     Route: 048
     Dates: start: 20110330, end: 20120611
  2. SOTALOL HCL [Concomitant]
     Dosage: 40 MILLIGRAM
     Route: 048
     Dates: end: 20120622

REACTIONS (1)
  - ATRIOVENTRICULAR BLOCK SECOND DEGREE [None]
